FAERS Safety Report 11592268 (Version 1)
Quarter: 2015Q4

REPORT INFORMATION
  Report Type: Spontaneous
  Country: GB (occurrence: GB)
  Receive Date: 20151005
  Receipt Date: 20151005
  Transmission Date: 20160304
  Serious: Yes (Other)
  Sender: FDA-Public Use
  Company Number: GB-ACCORD-034076

PATIENT
  Age: 70 Year
  Sex: Male
  Weight: 64 kg

DRUGS (15)
  1. TRAMADOL/TRAMADOL HYDROCHLORIDE [Suspect]
     Active Substance: TRAMADOL HYDROCHLORIDE
     Indication: PRODUCT USED FOR UNKNOWN INDICATION
     Dates: start: 20150728
  2. ATORVASTATIN/ATORVASTATIN CALCIUM [Concomitant]
     Dates: start: 20131231
  3. CALCIUM CARBONATE. [Concomitant]
     Active Substance: CALCIUM CARBONATE
     Dates: start: 20150911
  4. COCODAMOL [Concomitant]
     Active Substance: ACETAMINOPHEN\CODEINE PHOSPHATE
     Indication: PAIN
     Dosage: 1-2 FOR PAIN WHEN REQUIRED
     Dates: start: 20150915
  5. PREDNISOLONE. [Concomitant]
     Active Substance: PREDNISOLONE
     Dosage: 1 AS DIRECTED
     Dates: start: 20150904
  6. SPIRONOLACTONE. [Concomitant]
     Active Substance: SPIRONOLACTONE
     Dates: start: 20150426, end: 20150911
  7. ADCAL [Concomitant]
     Dates: start: 20150813
  8. CARVEDILOL. [Concomitant]
     Active Substance: CARVEDILOL
     Dates: start: 20150423
  9. DABIGATRAN/DABIGATRAN ETEXILATE [Concomitant]
     Dates: start: 20131014
  10. OMEPRAZOLE. [Concomitant]
     Active Substance: OMEPRAZOLE
     Dates: start: 20150304, end: 20150911
  11. CETIRIZINE [Concomitant]
     Active Substance: CETIRIZINE HYDROCHLORIDE
     Indication: IRRITABILITY
     Dates: start: 20150623, end: 20150713
  12. DIGOXIN. [Concomitant]
     Active Substance: DIGOXIN
     Dates: start: 20150304
  13. RAMIPRIL. [Concomitant]
     Active Substance: RAMIPRIL
     Dates: start: 20150706
  14. ALLOPURINOL/ALLOPURINOL SODIUM [Concomitant]
     Dates: start: 20140721
  15. FUROSEMIDE. [Concomitant]
     Active Substance: FUROSEMIDE
     Dosage: 2 TO BE TAKEN EACH MORNING 1 AT LUNCH
     Dates: start: 20150731

REACTIONS (1)
  - Delirium [Unknown]

NARRATIVE: CASE EVENT DATE: 20150915
